FAERS Safety Report 8843575 (Version 4)
Quarter: 2012Q4

REPORT INFORMATION
  Report Type: 
  Country: US (occurrence: US)
  Receive Date: 20121016
  Receipt Date: 20121127
  Transmission Date: 20130627
  Serious: No
  Sender: FDA-Public Use
  Company Number: US-VERTEX PHARMACEUTICAL INC.-2012-022616

PATIENT
  Sex: Male
  Weight: 98 kg

DRUGS (6)
  1. VX-950 (TELAPREVIR) [Suspect]
     Indication: HEPATITIS C
     Dosage: 750 mg, tid
     Route: 048
     Dates: start: 20120801
  2. RIBAPAK [Concomitant]
     Indication: HEPATITIS C
     Dosage: 600 mg, bid
     Route: 048
     Dates: start: 20120801
  3. PEGASYS [Concomitant]
     Indication: HEPATITIS C
     Dosage: 180 ?g, qw
     Route: 058
     Dates: start: 20120801
  4. AMBIEN [Concomitant]
     Dosage: 10 mg, qd
     Route: 048
  5. CLONAZEPAM [Concomitant]
     Dosage: 1 mg, tid
     Route: 048
  6. PROZAC [Concomitant]
     Dosage: 10 mg, qd
     Route: 048

REACTIONS (4)
  - Adverse reaction [Unknown]
  - Depression [Unknown]
  - Influenza like illness [Unknown]
  - Stomatitis [Unknown]
